FAERS Safety Report 26217312 (Version 1)
Quarter: 2025Q4

REPORT INFORMATION
  Report Type: Spontaneous
  Country: EU (occurrence: EU)
  Receive Date: 20251231
  Receipt Date: 20251231
  Transmission Date: 20260117
  Serious: Yes (Other)
  Sender: DR REDDYS
  Company Number: EU-RDY-ESP/2025/12/020136

PATIENT
  Age: 60 Year
  Sex: Male

DRUGS (1)
  1. SUNITINIB [Suspect]
     Active Substance: SUNITINIB
     Indication: Renal cancer

REACTIONS (2)
  - Peritonitis [Unknown]
  - Large intestine perforation [Unknown]
